FAERS Safety Report 12328587 (Version 1)
Quarter: 2016Q2

REPORT INFORMATION
  Report Type: Spontaneous
  Country: US (occurrence: US)
  Receive Date: 20160503
  Receipt Date: 20160503
  Transmission Date: 20160815
  Serious: No
  Sender: FDA-Public Use
  Company Number: US-BEH-2015049417

PATIENT
  Sex: Female
  Weight: 59 kg

DRUGS (12)
  1. DIPHENHYDRAMINE. [Concomitant]
     Active Substance: DIPHENHYDRAMINE
  2. LMX [Concomitant]
     Active Substance: LIDOCAINE
  3. ALBUTEROL. [Concomitant]
     Active Substance: ALBUTEROL
  4. HIZENTRA [Suspect]
     Active Substance: HUMAN IMMUNOGLOBULIN G
     Indication: HETEROTAXIA
     Route: 058
  5. EPIPEN [Concomitant]
     Active Substance: EPINEPHRINE
  6. LIDOCAINE/PRILOCAINE [Concomitant]
  7. ADVAIR HFA [Concomitant]
     Active Substance: FLUTICASONE PROPIONATE\SALMETEROL XINAFOATE
  8. HIZENTRA [Suspect]
     Active Substance: HUMAN IMMUNOGLOBULIN G
     Indication: HETEROTAXIA
     Route: 058
  9. OXYGEN. [Concomitant]
     Active Substance: OXYGEN
  10. FLOVENT [Concomitant]
     Active Substance: FLUTICASONE PROPIONATE
  11. ZANTAC [Concomitant]
     Active Substance: RANITIDINE HYDROCHLORIDE
  12. HIZENTRA [Suspect]
     Active Substance: HUMAN IMMUNOGLOBULIN G
     Indication: HUMORAL IMMUNE DEFECT
     Route: 058

REACTIONS (2)
  - Acne [Unknown]
  - Weight increased [Unknown]
